FAERS Safety Report 10562565 (Version 1)
Quarter: 2014Q4

REPORT INFORMATION
  Report Type: Spontaneous
  Country: US (occurrence: None)
  Receive Date: 20141103
  Receipt Date: 20141103
  Transmission Date: 20150529
  Serious: Yes (Other)
  Sender: FDA-Public Use
  Company Number: None

PATIENT
  Age: 64 Year
  Sex: Female
  Weight: 51.71 kg

DRUGS (1)
  1. CIPRO [Suspect]
     Active Substance: CIPROFLOXACIN HYDROCHLORIDE
     Indication: PREOPERATIVE CARE
     Dosage: AS NEEDED
     Dates: start: 20140617

REACTIONS (4)
  - Fractured sacrum [None]
  - Loss of consciousness [None]
  - Feeling abnormal [None]
  - Fall [None]

NARRATIVE: CASE EVENT DATE: 20140617
